FAERS Safety Report 5786009-4 (Version None)
Quarter: 2008Q2

REPORT INFORMATION
  Report Type: 
  Country: None (occurrence: None)
  Receive Date: 20080624
  Receipt Date: 20080618
  Transmission Date: 20081010
  Serious: Yes (Death, Hospitalization, Other)
  Sender: FDA-Public Use
  Company Number: PHHY2008JP10467

PATIENT
  Age: 78 Year
  Sex: Male

DRUGS (3)
  1. VOLTAREN [Suspect]
     Indication: PAIN IN EXTREMITY
     Dosage: 75 MG
     Route: 048
  2. LANIRAPID [Suspect]
     Indication: ATRIAL FIBRILLATION
     Dosage: 0.1 MG
     Route: 048
  3. LASIX [Concomitant]
     Indication: ATRIAL FIBRILLATION
     Dosage: 20 MG
     Route: 048

REACTIONS (18)
  - ANOREXIA [None]
  - ATRIAL CONDUCTION TIME PROLONGATION [None]
  - ATRIAL FIBRILLATION [None]
  - BLOOD CREATININE INCREASED [None]
  - BLOOD POTASSIUM INCREASED [None]
  - BLOOD UREA INCREASED [None]
  - BRADYCARDIA [None]
  - BRAIN NATRIURETIC PEPTIDE INCREASED [None]
  - DEHYDRATION [None]
  - DYSPNOEA [None]
  - HEART RATE DECREASED [None]
  - HEART RATE IRREGULAR [None]
  - HYPOTENSION [None]
  - RENAL FAILURE ACUTE [None]
  - RENAL IMPAIRMENT [None]
  - RESPIRATORY ARREST [None]
  - RESPIRATORY DISTRESS [None]
  - THERAPEUTIC AGENT TOXICITY [None]
